FAERS Safety Report 6091800-3 (Version None)
Quarter: 2009Q1

REPORT INFORMATION
  Report Type: 
  Country: None (occurrence: None)
  Receive Date: 20090225
  Receipt Date: 20080625
  Transmission Date: 20090719
  Serious: No
  Sender: FDA-Public Use
  Company Number: A0735869A

PATIENT
  Age: 72 Year
  Sex: Female
  Weight: 83.9 kg

DRUGS (8)
  1. VALTREX [Suspect]
     Indication: DRUG USE FOR UNKNOWN INDICATION
     Route: 048
     Dates: start: 20080401, end: 20080101
  2. LYRICA [Suspect]
     Dosage: 75MG TWICE PER DAY
     Route: 048
     Dates: start: 20080403
  3. HYDROCHLOROTHIAZIDE [Concomitant]
  4. ACCUPRIL [Concomitant]
  5. K-DUR [Concomitant]
  6. WARFARIN SODIUM [Concomitant]
  7. DARVOCET [Concomitant]
  8. TOPROL-XL [Concomitant]

REACTIONS (5)
  - ABDOMINAL DISCOMFORT [None]
  - FEAR [None]
  - MYDRIASIS [None]
  - POLLAKIURIA [None]
  - VISUAL BRIGHTNESS [None]
